FAERS Safety Report 9305631 (Version 1)
Quarter: 2013Q2

REPORT INFORMATION
  Report Type: Spontaneous
  Country: US (occurrence: None)
  Receive Date: 20130522
  Receipt Date: 20130522
  Transmission Date: 20140414
  Serious: Yes (Other)
  Sender: FDA-Public Use
  Company Number: None

PATIENT
  Age: 22 Year
  Sex: Female
  Weight: 80.74 kg

DRUGS (2)
  1. BRIELLYN [Suspect]
     Indication: CONTRACEPTION
     Dosage: 1 ONCE A DAY
     Route: 048
     Dates: start: 20130512, end: 20130515
  2. BRIELLYN [Concomitant]

REACTIONS (12)
  - Headache [None]
  - Nausea [None]
  - Pyrexia [None]
  - Pain [None]
  - Chills [None]
  - Fatigue [None]
  - Drug dose omission [None]
  - Asthenia [None]
  - Decreased appetite [None]
  - Somnolence [None]
  - Vaginal haemorrhage [None]
  - Cough [None]
